FAERS Safety Report 8388108-X (Version None)
Quarter: 2012Q2

REPORT INFORMATION
  Report Type: 
  Country: None (occurrence: None)
  Receive Date: 20120525
  Receipt Date: 20120517
  Transmission Date: 20120825
  Serious: Yes (Hospitalization, Other)
  Sender: FDA-Public Use
  Company Number: JP-VERTEX PHARMACEUTICALS INC.-AE-2012-005300

PATIENT
  Age: 66 Year
  Sex: Male

DRUGS (45)
  1. RIBAVIRIN [Concomitant]
     Route: 048
     Dates: start: 20120302, end: 20120325
  2. PEGINTERFERON ALFA-2B [Concomitant]
     Indication: HEPATITIS C
     Dates: start: 20120215, end: 20120323
  3. ZOLPIDEM [Concomitant]
     Route: 048
     Dates: start: 20120216, end: 20120229
  4. SOLITA-T NO.1 [Concomitant]
     Dates: start: 20120227, end: 20120330
  5. DIOVAN [Concomitant]
     Route: 048
     Dates: start: 20120502, end: 20120517
  6. TELAVIC (TELAPREVIR) [Suspect]
     Indication: HEPATITIS C
     Route: 048
     Dates: start: 20120215, end: 20120221
  7. EXFORGE [Concomitant]
     Route: 048
     Dates: start: 20120425, end: 20120515
  8. FAMOTIDINE [Concomitant]
     Route: 048
     Dates: start: 20120425, end: 20120517
  9. ACETAMINOPHEN [Concomitant]
     Route: 048
     Dates: start: 20120329, end: 20120411
  10. DOGMATYL [Concomitant]
     Route: 048
     Dates: start: 20120310, end: 20120328
  11. ATARAX [Concomitant]
     Route: 051
     Dates: start: 20120424, end: 20120424
  12. AMLODIPINE BESYLATE [Concomitant]
     Route: 048
     Dates: end: 20120419
  13. ASPIRIN [Concomitant]
     Route: 048
     Dates: start: 20120425, end: 20120517
  14. GASMOTIN [Concomitant]
     Route: 048
     Dates: start: 20120425, end: 20120517
  15. PURSENNID [Concomitant]
     Route: 048
     Dates: start: 20120215, end: 20120228
  16. ACETAMINOPHEN [Concomitant]
     Route: 048
     Dates: start: 20120224, end: 20120308
  17. URSO 250 [Concomitant]
     Route: 048
     Dates: start: 20120425, end: 20120517
  18. BISOPROLOL FUMARATE [Concomitant]
     Route: 048
     Dates: start: 20120210, end: 20120419
  19. EXFORGE [Concomitant]
     Route: 048
     Dates: start: 20120210, end: 20120222
  20. ATARAX [Concomitant]
     Route: 051
     Dates: start: 20120324, end: 20120324
  21. DIOVAN [Concomitant]
     Route: 048
     Dates: end: 20120419
  22. BISOPROLOL FUMARATE [Concomitant]
     Route: 048
     Dates: start: 20120425, end: 20120517
  23. FAMOTIDINE [Concomitant]
     Route: 048
     Dates: start: 20120210, end: 20120419
  24. GASMOTIN [Concomitant]
     Route: 048
     Dates: start: 20120219, end: 20120419
  25. BIO-THREE [Concomitant]
     Route: 048
     Dates: start: 20120210, end: 20120211
  26. PEGASYS [Concomitant]
     Indication: HEPATITIS C
     Route: 058
     Dates: start: 20120215, end: 20120215
  27. LOXONIN [Concomitant]
     Route: 061
     Dates: start: 20120322, end: 20120328
  28. LENDORMIN [Concomitant]
     Route: 048
     Dates: start: 20120323, end: 20120405
  29. ALLOPURINOL [Concomitant]
     Route: 048
     Dates: start: 20120225, end: 20120429
  30. AMLODIPINE BESYLATE [Concomitant]
     Route: 048
     Dates: start: 20120502, end: 20120517
  31. PLAVIX [Concomitant]
     Route: 048
     Dates: start: 20120425, end: 20120517
  32. ZADITEN [Concomitant]
     Route: 031
     Dates: start: 20120314, end: 20120320
  33. ADOFEED [Concomitant]
     Route: 061
     Dates: start: 20120316, end: 20120325
  34. RIBAVIRIN [Concomitant]
     Indication: HEPATITIS C
     Route: 048
     Dates: start: 20120215, end: 20120221
  35. RIBAVIRIN [Concomitant]
     Route: 048
     Dates: start: 20120222, end: 20120301
  36. MEDICON [Concomitant]
     Route: 048
     Dates: start: 20120417, end: 20120419
  37. HIRUDOID [Concomitant]
     Route: 061
     Dates: start: 20120413, end: 20120419
  38. TELAVIC (TELAPREVIR) [Suspect]
     Route: 048
     Dates: start: 20120222, end: 20120325
  39. ASPIRIN [Concomitant]
     Route: 048
     Dates: start: 20120210, end: 20120419
  40. PLAVIX [Concomitant]
     Route: 048
     Dates: start: 20120210, end: 20120419
  41. KENEI G [Concomitant]
     Route: 054
     Dates: start: 20120222, end: 20120228
  42. SOLITA-T NO. 3 [Concomitant]
     Dates: start: 20120226, end: 20120227
  43. HYALEIN [Concomitant]
     Route: 031
     Dates: start: 20120314, end: 20120320
  44. REFLEX [Concomitant]
     Route: 048
     Dates: start: 20120323, end: 20120328
  45. FUCIDIN LEO [Concomitant]
     Route: 061
     Dates: start: 20120413, end: 20120419

REACTIONS (4)
  - RENAL DISORDER [None]
  - ANAEMIA [None]
  - DEPRESSION [None]
  - HYPERURICAEMIA [None]
